FAERS Safety Report 4886494-6 (Version None)
Quarter: 2006Q1

REPORT INFORMATION
  Report Type: 
  Country: None (occurrence: None)
  Receive Date: 20060118
  Receipt Date: 20060109
  Transmission Date: 20060701
  Serious: Yes (Hospitalization, Other)
  Sender: FDA-Public Use
  Company Number: HQWYE215031AUG05

PATIENT
  Age: 63 Year
  Sex: Female
  Weight: 78 kg

DRUGS (1)
  1. MYLOTARG [Suspect]
     Indication: ACUTE MYELOID LEUKAEMIA
     Dosage: 15 MG 1X PER 1 DAY, INTRAVENOUS
     Route: 042
     Dates: start: 20050815, end: 20050815

REACTIONS (9)
  - CLOSTRIDIUM DIFFICILE TOXIN TEST POSITIVE [None]
  - ENTEROCOCCAL BACTERAEMIA [None]
  - GRAFT VERSUS HOST DISEASE [None]
  - INFUSION RELATED REACTION [None]
  - NAUSEA [None]
  - NEUTROPENIA [None]
  - PYREXIA [None]
  - STAPHYLOCOCCAL BACTERAEMIA [None]
  - VIRAL INFECTION [None]
